FAERS Safety Report 7283948-2 (Version None)
Quarter: 2011Q1

REPORT INFORMATION
  Report Type: 
  Country: None (occurrence: None)
  Receive Date: 20110209
  Receipt Date: 20110128
  Transmission Date: 20110831
  Serious: Yes (Hospitalization, Congenital Anomaly)
  Sender: FDA-Public Use
  Company Number: DE-WATSON-2011-01491

PATIENT
  Sex: Male
  Weight: 2.89 kg

DRUGS (4)
  1. LAMOTRIGINE [Suspect]
     Indication: EPILEPSY
     Dosage: 325 MG, DAILY (3X75 + 100 MG/D)
     Route: 064
  2. LEVETIRACETAM [Suspect]
     Indication: EPILEPSY
     Dosage: 750 MG, DAILY (3X250 MG/D)
     Route: 064
  3. VALPROIC ACID (VALPROINSAURE) [Suspect]
     Indication: EPILEPSY
     Dosage: 1750 MG, DAILY (500-500-750 MG/D)
     Route: 064
  4. FOLIC ACID {FOLSAURE) [Concomitant]
     Indication: PROPHYLAXIS OF NEURAL TUBE DEFECT
     Route: 064

REACTIONS (5)
  - NEONATAL RESPIRATORY DISTRESS SYNDROME [None]
  - AGITATION NEONATAL [None]
  - HYPOTONIA NEONATAL [None]
  - FEEDING DISORDER NEONATAL [None]
  - DYSMORPHISM [None]
